FAERS Safety Report 9384582 (Version 1)
Quarter: 2013Q3

REPORT INFORMATION
  Report Type: Spontaneous
  Country: US (occurrence: US)
  Receive Date: 20130705
  Receipt Date: 20130705
  Transmission Date: 20140515
  Serious: No
  Sender: FDA-Public Use
  Company Number: US-BAYER-2013-081589

PATIENT
  Age: 58 Year
  Sex: Male

DRUGS (7)
  1. BETASERON [Suspect]
     Dosage: 0.3 MG, UNK
  2. LISINOPRIL [Concomitant]
     Dosage: 10 MG, UNK
  3. GABAPENTIN [Concomitant]
     Dosage: 300 MG, UNK
  4. WELLBUTRIN [Concomitant]
     Dosage: 1000 MG, UNK
  5. PROVIGIL [Concomitant]
     Dosage: 200 MG, UNK
  6. VITAMIN D [Concomitant]
     Dosage: 50000 U, UNK
  7. HYDROCHLOROTHIAZIDE [Concomitant]
     Dosage: 50 MG, UNK

REACTIONS (1)
  - Drug ineffective [None]
